FAERS Safety Report 10722367 (Version 1)
Quarter: 2015Q1

REPORT INFORMATION
  Report Type: Not Available
  Country: US (occurrence: US)
  Receive Date: 20150120
  Receipt Date: 20150120
  Transmission Date: 20150721
  Serious: No
  Sender: FDA-Public Use
  Company Number: US-LUPIN PHARMACEUTICALS INC.-E2B_00002035

PATIENT
  Sex: Female
  Weight: 12.71 kg

DRUGS (1)
  1. CEFPROZIL FOR ORAL SUSPENSION USP 250 MG/5 ML (CEFPROZIL) [Suspect]
     Active Substance: CEFPROZIL
     Indication: SINUSITIS
     Dosage: (375MG) 3-4 TEASPOONFUL
     Dates: start: 20140512

REACTIONS (2)
  - Abdominal pain upper [Unknown]
  - Diarrhoea [Unknown]
